FAERS Safety Report 21533860 (Version 1)
Quarter: 2022Q4

REPORT INFORMATION
  Report Type: Spontaneous
  Country: US (occurrence: None)
  Receive Date: 20221031
  Receipt Date: 20221031
  Transmission Date: 20230113
  Serious: Yes (Hospitalization)
  Sender: FDA-Public Use
  Company Number: None

PATIENT
  Age: 90 Year
  Sex: Male
  Weight: 60.5 kg

DRUGS (4)
  1. REMDESIVIR [Suspect]
     Active Substance: REMDESIVIR
     Indication: Bronchiolitis
     Dosage: 100MG DAILY INTRAVENOUS DRIP
     Route: 041
     Dates: start: 20221005, end: 20221009
  2. digoxin (LANOXIN) injection 250 mcg [Concomitant]
     Dates: start: 20221005, end: 20221006
  3. enoxaparin (LOVENOX) 60 mg/0.6 mL injection 60 mg [Concomitant]
     Dates: start: 20221005, end: 20221021
  4. methylPREDNISolone sod suc(PF) (Solu-MEDROL) injection 40 mg [Concomitant]
     Dates: start: 20221005, end: 20221011

REACTIONS (2)
  - Infusion site vesicles [None]
  - Infusion site bruising [None]

NARRATIVE: CASE EVENT DATE: 20221006
